FAERS Safety Report 15386169 (Version 1)
Quarter: 2018Q3

REPORT INFORMATION
  Report Type: Spontaneous
  Country: US (occurrence: US)
  Receive Date: 20180907
  Receipt Date: 20180907
  Transmission Date: 20181010
  Serious: No
  Sender: FDA-Public Use
  Company Number: None

PATIENT
  Age: 65 Year
  Sex: Female
  Weight: 67.13 kg

DRUGS (6)
  1. VITAMIN C [Concomitant]
     Active Substance: ASCORBIC ACID
  2. VIT B COMPLEX [Concomitant]
  3. CA  LACTATE [Concomitant]
  4. FISH OIL [Concomitant]
     Active Substance: FISH OIL
  5. RESTASIS [Suspect]
     Active Substance: CYCLOSPORINE
     Indication: DRY EYE
     Dosage: ?          QUANTITY:0.05 GTT DROP(S);?
     Route: 047
     Dates: start: 20180819, end: 20180819
  6. SYNTHROID [Concomitant]
     Active Substance: LEVOTHYROXINE SODIUM

REACTIONS (11)
  - Impaired work ability [None]
  - Fear [None]
  - Visual impairment [None]
  - Instillation site pain [None]
  - Stress [None]
  - Oral discomfort [None]
  - Hypoaesthesia [None]
  - Instillation site haemorrhage [None]
  - Paraesthesia [None]
  - Paraesthesia oral [None]
  - Drug hypersensitivity [None]

NARRATIVE: CASE EVENT DATE: 20180819
